FAERS Safety Report 9157178 (Version 1)
Quarter: 2013Q1

REPORT INFORMATION
  Report Type: Spontaneous
  Country: DK (occurrence: None)
  Receive Date: 20130212
  Receipt Date: 20130212
  Transmission Date: 20140127
  Serious: Yes (Other)
  Sender: FDA-Public Use
  Company Number: 2013MA000920

PATIENT
  Sex: Female

DRUGS (2)
  1. METFORMIN HYDROCHLORIDE EXTENDED-RELEASE TABLETS, 750 MG (PUREPAC) (METFORMIN HYDROCHLORIDE) [Suspect]
     Indication: PRODUCT USED FOR UNKNOWN INDICATION
  2. SIMVASTATIN (SIMVASTATIN) [Suspect]

REACTIONS (1)
  - Hypertransaminasaemia [None]
